FAERS Safety Report 14090687 (Version 1)
Quarter: 2017Q4

REPORT INFORMATION
  Report Type: Spontaneous
  Country: US (occurrence: US)
  Receive Date: 20171015
  Receipt Date: 20171015
  Transmission Date: 20180321
  Serious: Yes (Hospitalization)
  Sender: FDA-Public Use
  Company Number: US-SA-2017SA138744

PATIENT
  Age: 47 Year
  Sex: Female

DRUGS (15)
  1. PREDNISONE. [Concomitant]
     Active Substance: PREDNISONE
  2. CHLORTHALIDONE. [Concomitant]
     Active Substance: CHLORTHALIDONE
  3. LINZESS [Concomitant]
     Active Substance: LINACLOTIDE
  4. EZFE [Concomitant]
  5. WELLBUTRIN [Concomitant]
     Active Substance: BUPROPION HYDROCHLORIDE
  6. TRILEPTAL [Concomitant]
     Active Substance: OXCARBAZEPINE
  7. NEXIUM [Concomitant]
     Active Substance: ESOMEPRAZOLE MAGNESIUM
  8. GABAPENTIN. [Concomitant]
     Active Substance: GABAPENTIN
  9. VITAMIN C [Concomitant]
     Active Substance: ASCORBIC ACID
  10. PHENERGAN [Concomitant]
     Active Substance: PROMETHAZINE HYDROCHLORIDE
  11. BACLOFEN. [Concomitant]
     Active Substance: BACLOFEN
  12. RITALIN [Concomitant]
     Active Substance: METHYLPHENIDATE HYDROCHLORIDE
  13. AUBAGIO [Suspect]
     Active Substance: TERIFLUNOMIDE
     Indication: MULTIPLE SCLEROSIS
     Route: 048
  14. FENTANYL. [Concomitant]
     Active Substance: FENTANYL
  15. FOLIC ACID. [Concomitant]
     Active Substance: FOLIC ACID

REACTIONS (8)
  - Depression [Unknown]
  - Depressed mood [Unknown]
  - Decreased interest [Unknown]
  - Visual impairment [Unknown]
  - Multiple sclerosis relapse [Not Recovered/Not Resolved]
  - Fall [Unknown]
  - Swelling [Unknown]
  - Pain [Unknown]
